FAERS Safety Report 9551760 (Version 1)
Quarter: 2013Q3

REPORT INFORMATION
  Report Type: Spontaneous
  Country: US (occurrence: None)
  Receive Date: 20130702
  Receipt Date: 20130702
  Transmission Date: 20140515
  Serious: Yes (Hospitalization, Other)
  Sender: FDA-Public Use
  Company Number: PHEH2012US025269

PATIENT
  Age: 55 Year
  Sex: Male

DRUGS (4)
  1. DIOVAN HCT (VALSARTAN, HYDROCHLOROTHIAZIDE) UNKNOWN [Suspect]
     Indication: HYPERTENSION
     Dosage: 1 DF (320MG VALS/ 12.5 MG HCTZ) BID, ORAL
     Route: 048
  2. VERAPAMIL (VERAPAMIL) [Concomitant]
  3. COREG (CARVEDILOL) [Concomitant]
  4. ASPIRIN (ACETYLSALICYLIC ACID) [Concomitant]

REACTIONS (1)
  - Blood pressure increased [None]
